FAERS Safety Report 4483578-1 (Version None)
Quarter: 2004Q4

REPORT INFORMATION
  Report Type: 
  Country: None (occurrence: None)
  Receive Date: 20041021
  Receipt Date: 20041021
  Transmission Date: 20050328
  Serious: Yes (Hospitalization)
  Sender: FDA-Public Use
  Company Number: None

PATIENT
  Age: 57 Year
  Sex: Male
  Weight: 103.9 kg

DRUGS (14)
  1. PLAVIX [Suspect]
  2. BUSPIRONE HCL [Concomitant]
  3. PAROXETINE HCL [Concomitant]
  4. NITROGLYCERIN [Concomitant]
  5. ISOSORBIDE DINITRATE [Concomitant]
  6. ASPIRIN [Concomitant]
  7. PROPRANOLOL HCL [Concomitant]
  8. SIMVASTATIN [Concomitant]
  9. TEMAZEPAM [Concomitant]
  10. ANALGESIC CREAM [Concomitant]
  11. FLUNISOLIDE [Concomitant]
  12. OMEPRAZOLE [Concomitant]
  13. CHOLESTYRAMINE [Concomitant]
  14. HYDROCHLOROTHIAZIDE [Concomitant]

REACTIONS (1)
  - PRURITUS [None]
